FAERS Safety Report 12402595 (Version 2)
Quarter: 2016Q3

REPORT INFORMATION
  Report Type: Spontaneous
  Country: US (occurrence: US)
  Receive Date: 20160525
  Receipt Date: 20160725
  Transmission Date: 20161109
  Serious: Yes (Other)
  Sender: FDA-Public Use
  Company Number: US-ALLERGAN-1657614US

PATIENT
  Age: 61 Year
  Sex: Female

DRUGS (3)
  1. LATISSE [Suspect]
     Active Substance: BIMATOPROST
     Dosage: 2 GTT, QHS
     Route: 061
     Dates: start: 201602
  2. LATISSE [Suspect]
     Active Substance: BIMATOPROST
     Indication: GROWTH OF EYELASHES
     Dosage: 2 GTT, QHS
     Route: 061
     Dates: start: 2012, end: 2015
  3. LATISSE [Suspect]
     Active Substance: BIMATOPROST
     Dosage: UNK
     Route: 061
     Dates: start: 201508

REACTIONS (4)
  - Lung neoplasm malignant [Recovered/Resolved]
  - Lung adenocarcinoma metastatic [Recovered/Resolved]
  - Madarosis [Unknown]
  - Trichorrhexis [Not Recovered/Not Resolved]

NARRATIVE: CASE EVENT DATE: 201605
